FAERS Safety Report 18923344 (Version 4)
Quarter: 2023Q2

REPORT INFORMATION
  Report Type: Spontaneous
  Country: US (occurrence: US)
  Receive Date: 20210222
  Receipt Date: 20230424
  Transmission Date: 20230722
  Serious: No
  Sender: FDA-Public Use
  Company Number: US-PFIZER INC-2021138907

PATIENT
  Age: 70 Year
  Sex: Female
  Weight: 62.585 kg

DRUGS (1)
  1. PREMARIN [Suspect]
     Active Substance: ESTROGENS, CONJUGATED
     Indication: Hysterectomy
     Dosage: 0.625 MG

REACTIONS (4)
  - Confusional state [Unknown]
  - Speech disorder [Unknown]
  - Therapeutic response unexpected [Unknown]
  - Off label use [Unknown]
